APPROVED DRUG PRODUCT: EFAVIRENZ, LAMIVUDINE AND TENOFOVIR DISOPROXIL FUMARATE
Active Ingredient: EFAVIRENZ; LAMIVUDINE; TENOFOVIR DISOPROXIL FUMARATE
Strength: 400MG;300MG;300MG
Dosage Form/Route: TABLET;ORAL
Application: A213038 | Product #001
Applicant: LAURUS LABS LTD
Approved: May 14, 2020 | RLD: No | RS: Yes | Type: RX